FAERS Safety Report 10031890 (Version 6)
Quarter: 2016Q4

REPORT INFORMATION
  Report Type: Report from Study
  Country: None (occurrence: BR)
  Receive Date: 20140324
  Receipt Date: 20161212
  Transmission Date: 20170206
  Serious: Yes (Hospitalization, Disabling, Other)
  Sender: FDA-Public Use
  Company Number: BR-ABBVIE-12P-020-1000383-00

PATIENT
  Age: 71 Year
  Sex: Female
  Weight: 60 kg

DRUGS (20)
  1. ARAVA [Concomitant]
     Active Substance: LEFLUNOMIDE
     Indication: RHEUMATOID ARTHRITIS
     Dosage: AFTER DINNER
     Route: 048
     Dates: start: 2011
  2. OSTEOFORM (ALENDRONATE SODIUM) [Concomitant]
     Active Substance: ALENDRONATE SODIUM
     Indication: MINERAL SUPPLEMENTATION
     Route: 048
     Dates: start: 2006
  3. OSTEOFORM (ALENDRONATE SODIUM) [Concomitant]
     Active Substance: ALENDRONATE SODIUM
     Indication: OSTEOPOROSIS
  4. ATENOLOL. [Concomitant]
     Active Substance: ATENOLOL
     Indication: HYPERTENSION
     Route: 048
     Dates: start: 2013
  5. ALENDRONATE [Concomitant]
     Active Substance: ALENDRONATE SODIUM
     Indication: OSTEOPOROSIS
     Route: 048
     Dates: start: 2006
  6. OMEPRAZOLE. [Concomitant]
     Active Substance: OMEPRAZOLE
     Indication: PROPHYLAXIS
  7. OSCAL D [Concomitant]
     Active Substance: CALCIUM CARBONATE\CHOLECALCIFEROL
     Indication: OSTEOPOROSIS
     Dosage: AFTER LUNCH
     Route: 048
     Dates: start: 201404
  8. MELOXICAM. [Concomitant]
     Active Substance: MELOXICAM
     Indication: PAIN
     Route: 048
     Dates: start: 2011
  9. LOSARTAN POTASSIUM. [Concomitant]
     Active Substance: LOSARTAN POTASSIUM
     Indication: HYPERTENSION
     Route: 048
     Dates: start: 2013
  10. PREDSIM [Concomitant]
     Active Substance: PREDNISOLONE
     Indication: PAIN
     Route: 048
     Dates: start: 2006
  11. HUMIRA [Suspect]
     Active Substance: ADALIMUMAB
     Indication: RHEUMATOID ARTHRITIS
     Route: 058
     Dates: start: 20120101, end: 2013
  12. HUMIRA [Suspect]
     Active Substance: ADALIMUMAB
     Route: 058
  13. LEFLUNOMIDE. [Suspect]
     Active Substance: LEFLUNOMIDE
     Indication: PRODUCT USED FOR UNKNOWN INDICATION
     Route: 065
  14. PREDSIM [Concomitant]
     Active Substance: PREDNISOLONE
     Indication: ANTIINFLAMMATORY THERAPY
     Route: 048
     Dates: start: 2006
  15. PREDSIM [Concomitant]
     Active Substance: PREDNISOLONE
     Indication: RHEUMATOID ARTHRITIS
  16. CALDE [Concomitant]
     Active Substance: CALCIUM CARBONATE\CHOLECALCIFEROL
     Indication: MINERAL SUPPLEMENTATION
     Route: 048
     Dates: start: 2011
  17. OMEPRAZOLE. [Concomitant]
     Active Substance: OMEPRAZOLE
     Indication: GASTRIC DISORDER
     Route: 048
     Dates: start: 2006
  18. PRADAXA [Concomitant]
     Active Substance: DABIGATRAN ETEXILATE MESYLATE
     Indication: THROMBOSIS PROPHYLAXIS
     Dosage: AFTER LUNCH
     Route: 048
     Dates: start: 20140823
  19. OMEPRAZOLE. [Concomitant]
     Active Substance: OMEPRAZOLE
     Indication: GASTRIC DISORDER
  20. MELOXICAM. [Concomitant]
     Active Substance: MELOXICAM
     Indication: RHEUMATOID ARTHRITIS
     Route: 048
     Dates: start: 2006

REACTIONS (17)
  - Gait disturbance [Unknown]
  - Monoplegia [Recovered/Resolved]
  - Cerebral thrombosis [Recovered/Resolved]
  - Rheumatoid arthritis [Recovering/Resolving]
  - Spinal disorder [Recovered/Resolved]
  - Dropped head syndrome [Unknown]
  - Head injury [Recovered/Resolved]
  - Cerebral haematoma [Recovered/Resolved]
  - Monoparesis [Recovered/Resolved]
  - Loss of consciousness [Recovered/Resolved]
  - Neuritis [Unknown]
  - Paresis [Unknown]
  - Dysstasia [Unknown]
  - Anaemia [Recovering/Resolving]
  - Intervertebral disc protrusion [Recovering/Resolving]
  - Cervical cord compression [Unknown]
  - Balance disorder [Unknown]

NARRATIVE: CASE EVENT DATE: 2012
